FAERS Safety Report 8758016 (Version 1)
Quarter: 2012Q4

REPORT INFORMATION
  Report Type: 
  Country: US (occurrence: US)
  Receive Date: 20120828
  Receipt Date: 20120828
  Transmission Date: 20130627
  Serious: Yes (Other)
  Sender: FDA-Public Use
  Company Number: US-PFIZER INC-2012204910

PATIENT
  Age: 64 Year
  Sex: Male

DRUGS (2)
  1. SULFASALAZINE [Suspect]
     Indication: PSORIATIC ARTHROPATHY
     Dosage: UNK
  2. HUMIRA [Suspect]
     Dosage: UNK
     Dates: start: 2010

REACTIONS (3)
  - Pustular psoriasis [Unknown]
  - Psoriasis [Unknown]
  - Drug ineffective [Unknown]
